FAERS Safety Report 6464101-9 (Version None)
Quarter: 2009Q4

REPORT INFORMATION
  Report Type: 
  Country: None (occurrence: None)
  Receive Date: 20091130
  Receipt Date: 20091130
  Transmission Date: 20100525
  Serious: Yes (Hospitalization, Other)
  Sender: FDA-Public Use
  Company Number: None

PATIENT
  Age: 55 Year
  Sex: Female
  Weight: 46.2669 kg

DRUGS (1)
  1. DOXYCYCLINE [Suspect]

REACTIONS (6)
  - ABDOMINAL PAIN UPPER [None]
  - HEADACHE [None]
  - HYPERTENSION [None]
  - LABORATORY TEST ABNORMAL [None]
  - RENAL FUNCTION TEST ABNORMAL [None]
  - VOMITING [None]
